FAERS Safety Report 23080271 (Version 5)
Quarter: 2024Q3

REPORT INFORMATION
  Report Type: Report from Study
  Country: PR (occurrence: PR)
  Receive Date: 20231018
  Receipt Date: 20240814
  Transmission Date: 20241017
  Serious: Yes (Hospitalization)
  Sender: PFIZER
  Company Number: PR-PFIZER INC-202300253917

PATIENT
  Age: 54 Year
  Sex: Female
  Weight: 63 kg

DRUGS (17)
  1. IBRANCE [Suspect]
     Active Substance: PALBOCICLIB
     Indication: Neoplasm malignant
     Dosage: 100 MG, DAILY 21 DAYS ON + 7 DAYS OFF
     Route: 048
     Dates: start: 20210819
  2. IBRANCE [Suspect]
     Active Substance: PALBOCICLIB
     Dosage: 100 MG, 1X/DAY
  3. IBRANCE [Suspect]
     Active Substance: PALBOCICLIB
     Dosage: 100 MG 1 TAB DAILY 21 DAYS AND 7 DAYS OFF
  4. IBRANCE [Suspect]
     Active Substance: PALBOCICLIB
     Dosage: 100 MGS TABLET DAILY 21 DAYS ON + 7 DAYS OFF
     Route: 048
  5. IBRANCE [Suspect]
     Active Substance: PALBOCICLIB
     Dosage: 100 MG TABLET DAILY FOR 21 DAYS
     Route: 048
     Dates: start: 20210819
  6. LOZARTAN GEO [Concomitant]
     Dosage: UNK
     Dates: start: 2023
  7. RISPERDAL [Concomitant]
     Active Substance: RISPERIDONE
     Dosage: UNK
     Dates: start: 2023
  8. TRIAMCINOLONE ACETONIDE [Concomitant]
     Active Substance: TRIAMCINOLONE ACETONIDE
     Dosage: UNK
     Dates: start: 2023
  9. LORAZEPAM [Concomitant]
     Active Substance: LORAZEPAM
     Dosage: UNK
     Dates: start: 2023
  10. ELIQUIS [Concomitant]
     Active Substance: APIXABAN
     Dosage: UNK
     Dates: start: 2023
  11. FLUOXETINE [Concomitant]
     Active Substance: FLUOXETINE HYDROCHLORIDE
     Dosage: UNK
     Dates: start: 2023
  12. SYNTHROID [Concomitant]
     Active Substance: LEVOTHYROXINE SODIUM
     Dosage: UNK
  13. FASLODEX [Concomitant]
     Active Substance: FULVESTRANT
     Dosage: UNK
  14. OMEPRAZOLE [Concomitant]
     Active Substance: OMEPRAZOLE
     Dosage: UNK
  15. ZOLPIDEM TARTRATE [Concomitant]
     Active Substance: ZOLPIDEM TARTRATE
     Dosage: UNK
  16. PROZAC [Concomitant]
     Active Substance: FLUOXETINE HYDROCHLORIDE
     Dosage: UNK
  17. ZOLEDRONIC ACID [Concomitant]
     Active Substance: ZOLEDRONIC ACID
     Dosage: UNK

REACTIONS (8)
  - Pruritus [Recovered/Resolved]
  - Rash [Recovered/Resolved]
  - Burning sensation [Not Recovered/Not Resolved]
  - Influenza [Unknown]
  - Erythema [Unknown]
  - Abdominal discomfort [Not Recovered/Not Resolved]
  - Diarrhoea [Not Recovered/Not Resolved]
  - Vomiting [Not Recovered/Not Resolved]

NARRATIVE: CASE EVENT DATE: 20230613
